FAERS Safety Report 9221642 (Version 2)
Quarter: 2013Q2

REPORT INFORMATION
  Report Type: Spontaneous
  Country: KR (occurrence: None)
  Receive Date: 20130408
  Receipt Date: 20130417
  Transmission Date: 20140414
  Serious: Yes (Other)
  Sender: FDA-Public Use
  Company Number: JP-2013-10800

PATIENT
  Age: 50 Year
  Sex: Male

DRUGS (1)
  1. TOLVAPTAN [Suspect]

REACTIONS (1)
  - Hepatic encephalopathy [None]
